FAERS Safety Report 7967193-0 (Version None)
Quarter: 2011Q4

REPORT INFORMATION
  Report Type: 
  Country: None (occurrence: None)
  Receive Date: 20111209
  Receipt Date: 20111130
  Transmission Date: 20120403
  Serious: Yes (Hospitalization)
  Sender: FDA-Public Use
  Company Number: SK-AMGEN-SVKNI2011063355

PATIENT
  Age: 49 Year
  Sex: Male

DRUGS (1)
  1. DARBEPOETIN ALFA [Suspect]
     Indication: RENAL FAILURE
     Dosage: UNK, Q2WK
     Route: 042
     Dates: start: 20110717

REACTIONS (1)
  - ARTERIOVENOUS FISTULA THROMBOSIS [None]
